FAERS Safety Report 8032603-X (Version None)
Quarter: 2011Q4

REPORT INFORMATION
  Report Type: 
  Country: None (occurrence: None)
  Receive Date: 20111223
  Receipt Date: 20111212
  Transmission Date: 20120403
  Serious: Yes (Other)
  Sender: FDA-Public Use
  Company Number: 2011SP058261

PATIENT
  Sex: Female

DRUGS (4)
  1. PEG-INTRON [Suspect]
     Indication: HEPATITIS C
     Dates: start: 20110807
  2. BOCEPREVIR [Suspect]
     Indication: HEPATITIS C
     Dates: start: 20110904
  3. LEXAPRO [Concomitant]
  4. RIBAVIRIN [Suspect]
     Indication: HEPATITIS C
     Dates: start: 20110807

REACTIONS (16)
  - IRRITABILITY [None]
  - DEPRESSION [None]
  - MALAISE [None]
  - HOMICIDAL IDEATION [None]
  - HYPERSOMNIA [None]
  - INJECTION SITE ERYTHEMA [None]
  - INFLUENZA LIKE ILLNESS [None]
  - HEADACHE [None]
  - DRY MOUTH [None]
  - WEIGHT DECREASED [None]
  - INSOMNIA [None]
  - TREATMENT NONCOMPLIANCE [None]
  - ANGER [None]
  - AGGRESSION [None]
  - PAIN [None]
  - PSYCHOTIC DISORDER [None]
